FAERS Safety Report 5492684-4 (Version None)
Quarter: 2007Q4

REPORT INFORMATION
  Report Type: 
  Country: None (occurrence: None)
  Receive Date: 20071019
  Receipt Date: 20071019
  Transmission Date: 20080405
  Serious: No
  Sender: FDA-Public Use
  Company Number: None

PATIENT
  Sex: Female

DRUGS (1)
  1. HALDOL [Suspect]
     Dosage: 5MG ONE DOSE ORAL
     Route: 048
     Dates: start: 20070228

REACTIONS (1)
  - ELECTROCARDIOGRAM QT PROLONGED [None]
